FAERS Safety Report 4621318-3 (Version None)
Quarter: 2005Q1

REPORT INFORMATION
  Report Type: 
  Country: None (occurrence: None)
  Receive Date: 20050323
  Receipt Date: 20050323
  Transmission Date: 20050727
  Serious: Yes (Other)
  Sender: FDA-Public Use
  Company Number: None

PATIENT
  Age: 8 Year
  Sex: Male
  Weight: 43 kg

DRUGS (2)
  1. REGLAN [Suspect]
     Indication: NAUSEA
     Dosage: 10 MG /NS 25 ML IV TID
     Route: 042
     Dates: start: 20050318
  2. REGLAN [Suspect]
     Indication: VOMITING
     Dosage: 10 MG /NS 25 ML IV TID
     Route: 042
     Dates: start: 20050318

REACTIONS (1)
  - PRURITUS [None]
